FAERS Safety Report 16036115 (Version 1)
Quarter: 2019Q1

REPORT INFORMATION
  Report Type: Spontaneous
  Country: IT (occurrence: IT)
  Receive Date: 20190305
  Receipt Date: 20190305
  Transmission Date: 20190418
  Serious: Yes (Hospitalization)
  Sender: FDA-Public Use
  Company Number: IT-PFIZER INC-2019090767

PATIENT
  Age: 89 Year
  Sex: Female

DRUGS (9)
  1. OMEPRAZOLE. [Concomitant]
     Active Substance: OMEPRAZOLE
  2. CONGESCOR [Concomitant]
     Active Substance: BISOPROLOL
  3. TAPAZOLE [Concomitant]
     Active Substance: METHIMAZOLE
  4. MEDROL [Suspect]
     Active Substance: METHYLPREDNISOLONE
     Dosage: UNK
     Route: 048
     Dates: start: 20180719, end: 20190119
  5. ELIQUIS [Concomitant]
     Active Substance: APIXABAN
  6. LASIX [Concomitant]
     Active Substance: FUROSEMIDE
  7. ZYLORIC [Concomitant]
     Active Substance: ALLOPURINOL
  8. MOVICOL [Concomitant]
     Active Substance: POLYETHYLENE GLYCOL 3350\POTASSIUM CHLORIDE\SODIUM BICARBONATE\SODIUM CHLORIDE
  9. TRITTICO [Concomitant]
     Active Substance: TRAZODONE HYDROCHLORIDE

REACTIONS (6)
  - Asthenia [Unknown]
  - Diabetes with hyperosmolarity [Unknown]
  - Decreased appetite [Unknown]
  - Constipation [Unknown]
  - Blood glucose abnormal [Unknown]
  - Polyuria [Unknown]

NARRATIVE: CASE EVENT DATE: 20190119
